FAERS Safety Report 7518677-0 (Version None)
Quarter: 2011Q2

REPORT INFORMATION
  Report Type: 
  Country: None (occurrence: None)
  Receive Date: 20110602
  Receipt Date: 20110519
  Transmission Date: 20111010
  Serious: Yes (Other)
  Sender: FDA-Public Use
  Company Number: PHHY2011EC43583

PATIENT
  Sex: Female

DRUGS (5)
  1. ZOPLICONE [Concomitant]
  2. DIOVAN [Suspect]
     Dosage: 160 MG, 1 TABLET DAILY
     Route: 048
     Dates: start: 20110516
  3. DIOVAN [Suspect]
     Indication: HYPERTENSION
     Dosage: 80 MG, 1 TABLET DAILY
     Route: 048
     Dates: start: 20050102, end: 20110516
  4. BISOPROLOL FUMARATE [Concomitant]
  5. LIPITOR [Concomitant]

REACTIONS (3)
  - DIZZINESS [None]
  - LOSS OF CONSCIOUSNESS [None]
  - BLOOD PRESSURE INCREASED [None]
